FAERS Safety Report 6761887-0 (Version None)
Quarter: 2010Q2

REPORT INFORMATION
  Report Type: 
  Country: None (occurrence: None)
  Receive Date: 20100609
  Receipt Date: 20100609
  Transmission Date: 20101027
  Serious: Yes (Other)
  Sender: FDA-Public Use
  Company Number: None

PATIENT
  Age: 2 Year
  Sex: Female
  Weight: 13.1543 kg

DRUGS (1)
  1. ZYRTEC [Suspect]
     Indication: MULTIPLE ALLERGIES
     Dosage: 2.5ML PO
     Route: 048
     Dates: start: 20100216, end: 20100228

REACTIONS (4)
  - ABDOMINAL PAIN UPPER [None]
  - AGGRESSION [None]
  - MOOD SWINGS [None]
  - UNDERDOSE [None]
